FAERS Safety Report 6825597-3 (Version None)
Quarter: 2010Q3

REPORT INFORMATION
  Report Type: 
  Country: None (occurrence: None)
  Receive Date: 20100708
  Receipt Date: 20070220
  Transmission Date: 20110219
  Serious: Yes (Other)
  Sender: FDA-Public Use
  Company Number: US-PFIZER INC-2006147667

PATIENT
  Sex: Female
  Weight: 90.3 kg

DRUGS (5)
  1. CHANTIX [Suspect]
     Indication: SMOKING CESSATION THERAPY
     Route: 048
     Dates: start: 20061108, end: 20070101
  2. WARFARIN SODIUM [Concomitant]
  3. ROXICODONE [Concomitant]
  4. LIPITOR [Concomitant]
  5. DIAZEPAM [Concomitant]

REACTIONS (6)
  - ABNORMAL DREAMS [None]
  - ANXIETY [None]
  - COLD SWEAT [None]
  - INTERNATIONAL NORMALISED RATIO FLUCTUATION [None]
  - SOMNOLENCE [None]
  - TOBACCO USER [None]
